FAERS Safety Report 14780337 (Version 2)
Quarter: 2018Q3

REPORT INFORMATION
  Report Type: Spontaneous
  Country: GB (occurrence: GB)
  Receive Date: 20180419
  Receipt Date: 20180702
  Transmission Date: 20181010
  Serious: Yes (Other)
  Sender: FDA-Public Use
  Company Number: GB-PFIZER INC-2018151595

PATIENT
  Age: 63 Year
  Sex: Female

DRUGS (3)
  1. SERTRALINE HCL [Suspect]
     Active Substance: SERTRALINE HYDROCHLORIDE
     Dosage: 250 MG, 1X/DAY
     Dates: start: 2017, end: 201801
  2. SERTRALINE HCL [Suspect]
     Active Substance: SERTRALINE HYDROCHLORIDE
     Indication: DEPRESSION
     Dosage: 100 MG, 1X/DAY
     Dates: start: 201801, end: 20180314
  3. SERTRALINE HCL [Suspect]
     Active Substance: SERTRALINE HYDROCHLORIDE
     Indication: DEPRESSION
     Dosage: 50 MG, 1X/DAY
     Route: 065
     Dates: start: 2017, end: 2017

REACTIONS (33)
  - Dysuria [Recovering/Resolving]
  - Dry skin [Recovering/Resolving]
  - Peripheral swelling [Recovering/Resolving]
  - Gingival disorder [Recovering/Resolving]
  - Amnesia [Not Recovered/Not Resolved]
  - Joint swelling [Recovering/Resolving]
  - Increased appetite [Recovering/Resolving]
  - Diarrhoea [Recovering/Resolving]
  - Dysphagia [Recovering/Resolving]
  - Insomnia [Recovering/Resolving]
  - Tooth disorder [Recovering/Resolving]
  - Dizziness [Recovering/Resolving]
  - Fall [Recovering/Resolving]
  - Incontinence [Recovered/Resolved]
  - Hypertensive crisis [Recovering/Resolving]
  - Speech disorder [Recovering/Resolving]
  - Palpitations [Recovering/Resolving]
  - Weight decreased [Recovering/Resolving]
  - Nightmare [Recovering/Resolving]
  - Blood pressure fluctuation [Recovering/Resolving]
  - Anxiety [Recovering/Resolving]
  - Platelet count increased [Recovering/Resolving]
  - Haemorrhage [Recovering/Resolving]
  - Contusion [Recovering/Resolving]
  - Vaginal haemorrhage [Recovering/Resolving]
  - Skin exfoliation [Recovering/Resolving]
  - Alopecia [Recovering/Resolving]
  - Hypoaesthesia [Recovering/Resolving]
  - Genital tract inflammation [Recovering/Resolving]
  - Asthenia [Recovering/Resolving]
  - Tremor [Recovering/Resolving]
  - Gingivitis [Recovering/Resolving]
  - Confusional state [Recovering/Resolving]

NARRATIVE: CASE EVENT DATE: 201711
